FAERS Safety Report 7940766-7 (Version None)
Quarter: 2011Q4

REPORT INFORMATION
  Report Type: 
  Country: None (occurrence: None)
  Receive Date: 20111128
  Receipt Date: 20111124
  Transmission Date: 20120403
  Serious: Yes (Death)
  Sender: FDA-Public Use
  Company Number: JP-PFIZER INC-2011287185

PATIENT
  Age: 83 Year
  Sex: Male
  Weight: 60 kg

DRUGS (21)
  1. TEMSIROLIMUS [Suspect]
     Indication: RENAL CELL CARCINOMA
     Dosage: 12.5 MG, UNK
     Route: 042
     Dates: start: 20110408, end: 20110408
  2. TEMSIROLIMUS [Suspect]
     Dosage: 12.5 MG, UNK
     Route: 042
     Dates: start: 20110422, end: 20110422
  3. PROCHLORPERAZINE [Concomitant]
     Dosage: 5 MG, 3X/DAY
     Route: 048
     Dates: start: 20110428
  4. POLYCARBOPHIL CALCIUM [Concomitant]
     Dosage: 1 G, 3X/DAY
     Route: 048
  5. ACETAMINOPHEN [Concomitant]
     Indication: PAIN
     Dosage: 400 MG, 3X/DAY
     Route: 048
     Dates: start: 20110422
  6. NORVASC [Concomitant]
     Dosage: 10 MG, 1X/DAY
     Route: 048
  7. OXINORM [Concomitant]
     Indication: PAIN
     Dosage: 5 MG, AS NEEDED
     Route: 048
     Dates: start: 20110428
  8. CHLOR-TRIMETON [Concomitant]
     Dosage: 10 MG, 1X/DAY
     Route: 042
     Dates: start: 20110506, end: 20110506
  9. MAGNESIUM OXIDE [Concomitant]
     Dosage: 0.5 G, 3X/DAY
     Route: 048
  10. NEUROTROPIN [Concomitant]
     Dosage: 8 UNITS TWICE DAILY
     Route: 048
  11. TRAMADOL HYDROCHLORIDE [Concomitant]
     Indication: PAIN
     Dosage: 25 MG, 4X/DAY
     Route: 048
     Dates: start: 20110417
  12. TEMSIROLIMUS [Suspect]
     Dosage: 12.5 MG, UNK
     Route: 042
     Dates: start: 20110506, end: 20110506
  13. CHLOR-TRIMETON [Concomitant]
     Indication: PROPHYLAXIS
     Dosage: 10 MG, 1X/DAY
     Route: 042
     Dates: start: 20110408, end: 20110408
  14. RABEPRAZOLE SODIUM [Concomitant]
     Dosage: 10 MG, 1X/DAY
     Route: 048
  15. LOXONIN [Concomitant]
     Dosage: UNK
     Route: 062
  16. MUCOSTA [Concomitant]
     Dosage: 100 MG, 3X/DAY
     Route: 048
     Dates: start: 20110427
  17. CHLOR-TRIMETON [Concomitant]
     Dosage: 10 MG, 1X/DAY
     Route: 042
     Dates: start: 20110422, end: 20110422
  18. GASCON [Concomitant]
     Dosage: 80 MG, 3X/DAY
     Route: 048
  19. PURSENNID [Concomitant]
     Dosage: 24 MG, 1X/DAY
  20. OXYCONTIN [Concomitant]
     Indication: PAIN
     Dosage: 10 MG, 2X/DAY
     Route: 048
     Dates: start: 20110512, end: 20110529
  21. ALOSENN [Concomitant]
     Dosage: 0.5 G, 3X/DAY
     Route: 048

REACTIONS (3)
  - BLOOD LACTATE DEHYDROGENASE INCREASED [None]
  - WHITE BLOOD CELL COUNT INCREASED [None]
  - DYSPNOEA [None]
